FAERS Safety Report 25107468 (Version 1)
Quarter: 2025Q1

REPORT INFORMATION
  Report Type: Spontaneous
  Country: CN (occurrence: CN)
  Receive Date: 20250321
  Receipt Date: 20250321
  Transmission Date: 20250409
  Serious: Yes (Other)
  Sender: ROCHE
  Company Number: CN-ROCHE-10000235084

PATIENT
  Age: 38 Year
  Sex: Male

DRUGS (2)
  1. OBINUTUZUMAB [Suspect]
     Active Substance: OBINUTUZUMAB
     Indication: Glomerulonephritis membranous
     Route: 042
     Dates: start: 20250103, end: 20250103
  2. TELMISARTAN [Concomitant]
     Active Substance: TELMISARTAN
     Indication: Proteinuria
     Route: 048
     Dates: start: 20241231, end: 20250104

REACTIONS (4)
  - Chills [Recovering/Resolving]
  - Blood pressure increased [Recovering/Resolving]
  - Off label use [Unknown]
  - Feeling cold [Recovering/Resolving]

NARRATIVE: CASE EVENT DATE: 20250103
